FAERS Safety Report 7486778-1 (Version None)
Quarter: 2011Q2

REPORT INFORMATION
  Report Type: 
  Country: None (occurrence: None)
  Receive Date: 20110517
  Receipt Date: 20101018
  Transmission Date: 20111010
  Serious: No
  Sender: FDA-Public Use
  Company Number: US-NOVEN-ALL1-2010-04933

PATIENT
  Sex: Male
  Weight: 26.304 kg

DRUGS (4)
  1. DAYTRANA [Suspect]
     Dosage: 10 MG ON SCHOOL DAYS
     Route: 048
     Dates: start: 20091101, end: 20100101
  2. DAYTRANA [Suspect]
     Dosage: 15 MG ON SCHOOL DAYS
     Route: 048
     Dates: start: 20091101, end: 20091101
  3. DAYTRANA [Suspect]
     Dosage: 10 MG ON SCHOOL DAYS
     Route: 048
     Dates: start: 20090901, end: 20091101
  4. DAYTRANA [Suspect]
     Dosage: 10 MG ON SCHOOL DAYS
     Route: 048
     Dates: start: 20100816

REACTIONS (6)
  - AGGRESSION [None]
  - ANXIETY [None]
  - DECREASED APPETITE [None]
  - SOMNOLENCE [None]
  - IRRITABILITY [None]
  - ANGER [None]
